FAERS Safety Report 14843245 (Version 1)
Quarter: 2018Q2

REPORT INFORMATION
  Report Type: Report from Study
  Country: GB (occurrence: GB)
  Receive Date: 20180503
  Receipt Date: 20180503
  Transmission Date: 20180711
  Serious: Yes (Other)
  Sender: FDA-Public Use
  Company Number: GB-GILEAD-2018-0336063

PATIENT
  Sex: Male

DRUGS (2)
  1. IDELALISIB [Suspect]
     Active Substance: IDELALISIB
     Indication: CHRONIC LYMPHOCYTIC LEUKAEMIA
     Dosage: UNK
     Route: 048
     Dates: start: 201601, end: 20160720
  2. RITUXIMAB. [Concomitant]
     Active Substance: RITUXIMAB

REACTIONS (8)
  - Treatment noncompliance [Unknown]
  - Cytomegalovirus infection [Unknown]
  - Disease progression [Unknown]
  - Weight decreased [Unknown]
  - Diarrhoea [Unknown]
  - Lower respiratory tract infection [Unknown]
  - Haemophilus infection [Unknown]
  - Fatigue [Unknown]

NARRATIVE: CASE EVENT DATE: 201603
